FAERS Safety Report 22711756 (Version 2)
Quarter: 2024Q2

REPORT INFORMATION
  Report Type: Spontaneous
  Country: IT (occurrence: IT)
  Receive Date: 20230717
  Receipt Date: 20240406
  Transmission Date: 20240716
  Serious: Yes (Hospitalization)
  Sender: FDA-Public Use
  Company Number: None

PATIENT
  Age: 60 Year
  Sex: Female

DRUGS (1)
  1. OCREVUS [Suspect]
     Active Substance: OCRELIZUMAB
     Indication: Primary progressive multiple sclerosis
     Dosage: NITIAL DOSE THE INITIAL DOSE OF 600 MG IS ADMINISTERED AS TWO DIFFERENT INTRAVENOUS INFUSIONS: A FIR
     Route: 042
     Dates: start: 20230529, end: 20230612

REACTIONS (2)
  - Pneumonitis [Recovering/Resolving]
  - Pneumonia [Recovering/Resolving]

NARRATIVE: CASE EVENT DATE: 20230613
